FAERS Safety Report 14630661 (Version 2)
Quarter: 2018Q2

REPORT INFORMATION
  Report Type: Spontaneous
  Country: IT (occurrence: IT)
  Receive Date: 20180313
  Receipt Date: 20180412
  Transmission Date: 20180711
  Serious: Yes (Hospitalization)
  Sender: FDA-Public Use
  Company Number: IT-SA-2018SA061804

PATIENT
  Sex: Male

DRUGS (1)
  1. LEMTRADA [Suspect]
     Active Substance: ALEMTUZUMAB
     Route: 041
     Dates: start: 20180115, end: 20180119

REACTIONS (4)
  - Headache [Unknown]
  - Ear pain [Unknown]
  - Eye pain [Unknown]
  - Superior sagittal sinus thrombosis [Unknown]

NARRATIVE: CASE EVENT DATE: 201802
